FAERS Safety Report 9034661 (Version 1)
Quarter: 2012Q4

REPORT INFORMATION
  Report Type: Spontaneous
  Country: NL (occurrence: None)
  Receive Date: 20121231
  Receipt Date: 20121231
  Transmission Date: 20130627
  Serious: Yes (Other)
  Sender: FDA-Public Use
  Company Number: 2013AP000011

PATIENT
  Age: 49 Year
  Sex: Female

DRUGS (3)
  1. LISINOPRIL  (LISINOPRIL) [Suspect]
     Indication: HYPERTENSION
     Dosage: Unknown;  UNK;  Unknown
  2. LEVETIRACETAM  (LEVETIRACETAM) [Concomitant]
  3. NITRAZEPAM  (NITRAZEPAM) [Concomitant]

REACTIONS (3)
  - Angioedema [None]
  - Intestinal ischaemia [None]
  - Acute abdomen [None]
